FAERS Safety Report 21006527 (Version 6)
Quarter: 2022Q4

REPORT INFORMATION
  Report Type: Report from Study
  Country: JP (occurrence: JP)
  Receive Date: 20220624
  Receipt Date: 20221118
  Transmission Date: 20230113
  Serious: Yes (Hospitalization)
  Sender: FDA-Public Use
  Company Number: JP-ABBVIE-22P-087-4438992-00

PATIENT
  Age: 36 Year
  Sex: Female

DRUGS (15)
  1. UPADACITINIB [Suspect]
     Active Substance: UPADACITINIB
     Indication: Systemic lupus erythematosus
     Route: 048
     Dates: start: 20220419, end: 20220611
  2. UPADACITINIB [Suspect]
     Active Substance: UPADACITINIB
     Indication: Systemic lupus erythematosus
     Route: 048
     Dates: start: 20220702
  3. ELSUBRUTINIB [Suspect]
     Active Substance: ELSUBRUTINIB
     Indication: Systemic lupus erythematosus
     Dosage: 3 CAPSULES
     Route: 048
     Dates: start: 20220419, end: 20220611
  4. ELSUBRUTINIB [Suspect]
     Active Substance: ELSUBRUTINIB
     Indication: Systemic lupus erythematosus
     Dosage: 3 CAPSULES
     Route: 048
     Dates: start: 20220702
  5. ESOMEPRAZOLE MAGNESIUM [Concomitant]
     Active Substance: ESOMEPRAZOLE MAGNESIUM
     Indication: Gastritis prophylaxis
     Route: 048
     Dates: start: 20190411
  6. SARPOGRELATE HYDROCHLORIDE [Concomitant]
     Active Substance: SARPOGRELATE HYDROCHLORIDE
     Indication: Thrombosis prophylaxis
     Route: 048
     Dates: start: 20170809
  7. HYDROXYCHLOROQUINE SULFATE [Concomitant]
     Active Substance: HYDROXYCHLOROQUINE SULFATE
     Indication: Systemic lupus erythematosus
     Route: 048
     Dates: start: 20170809
  8. HYDROXYCHLOROQUINE SULFATE [Concomitant]
     Active Substance: HYDROXYCHLOROQUINE SULFATE
     Indication: Systemic lupus erythematosus
     Route: 048
     Dates: start: 20170809
  9. BIFIDOBACTERIUM NOS [Concomitant]
     Indication: Constipation
     Route: 048
     Dates: start: 20190122
  10. LOXOPROFEN SODIUM [Concomitant]
     Active Substance: LOXOPROFEN SODIUM
     Indication: Systemic lupus erythematosus
     Dosage: TIME INTERVAL: AS NECESSARY
     Route: 048
     Dates: start: 20210202
  11. REBAMIPIDE [Concomitant]
     Active Substance: REBAMIPIDE
     Indication: Gastritis prophylaxis
     Dosage: TIME INTERVAL: AS NECESSARY
     Route: 048
     Dates: start: 20210202
  12. MAGNESIUM OXIDE [Concomitant]
     Active Substance: MAGNESIUM OXIDE
     Indication: Constipation
     Route: 048
     Dates: start: 20190122
  13. PREDNISOLONE [Concomitant]
     Active Substance: PREDNISOLONE
     Indication: Systemic lupus erythematosus
     Route: 048
     Dates: start: 20210615
  14. MYCOPHENOLATE MOFETIL [Concomitant]
     Active Substance: MYCOPHENOLATE MOFETIL
     Indication: Systemic lupus erythematosus
     Route: 048
     Dates: start: 20211207
  15. LULICONAZOLE [Concomitant]
     Active Substance: LULICONAZOLE
     Indication: Skin candida
     Route: 062
     Dates: start: 20220312

REACTIONS (3)
  - Tonsillitis [Recovered/Resolved]
  - Systemic lupus erythematosus [Recovered/Resolved]
  - Serositis [Recovered/Resolved]

NARRATIVE: CASE EVENT DATE: 20220615
